FAERS Safety Report 17597831 (Version 3)
Quarter: 2020Q4

REPORT INFORMATION
  Report Type: Spontaneous
  Country: US (occurrence: US)
  Receive Date: 20200330
  Receipt Date: 20201130
  Transmission Date: 20210113
  Serious: Yes (Other)
  Sender: FDA-Public Use
  Company Number: US-PFIZER INC-2019043752

PATIENT
  Age: 45 Year
  Sex: Female

DRUGS (1)
  1. XELJANZ [Suspect]
     Active Substance: TOFACITINIB CITRATE
     Indication: ALOPECIA UNIVERSALIS
     Dosage: 5 MG, UNK

REACTIONS (11)
  - Renal disorder [Unknown]
  - Eczema [Unknown]
  - Hypothyroidism [Unknown]
  - Off label use [Unknown]
  - Drug effective for unapproved indication [Unknown]
  - Hypertension [Unknown]
  - Hyperlipidaemia [Unknown]
  - Type 1 diabetes mellitus [Unknown]
  - Asthma [Unknown]
  - Product use in unapproved indication [Unknown]
  - Depressed mood [Unknown]
